FAERS Safety Report 7557319-5 (Version None)
Quarter: 2011Q2

REPORT INFORMATION
  Report Type: 
  Country: None (occurrence: None)
  Receive Date: 20110620
  Receipt Date: 20110519
  Transmission Date: 20111010
  Serious: Yes (Hospitalization)
  Sender: FDA-Public Use
  Company Number: PHHO2011HU08606

PATIENT
  Sex: Female
  Weight: 22 kg

DRUGS (3)
  1. PLACEBO [Suspect]
     Indication: CYSTIC FIBROSIS
     Dosage: CODE NOT BROKEN
     Dates: start: 20101004, end: 20101109
  2. BLINDED NO TREATMENT RECEIVED [Suspect]
     Indication: CYSTIC FIBROSIS
     Dosage: CODE NOT BROKEN
     Dates: start: 20101004, end: 20101109
  3. TOBRAMYCIN [Suspect]
     Indication: CYSTIC FIBROSIS
     Dosage: CODE NOT BROKEN
     Dates: start: 20101004, end: 20101109

REACTIONS (1)
  - LUNG DISORDER [None]
